FAERS Safety Report 16071915 (Version 6)
Quarter: 2019Q4

REPORT INFORMATION
  Report Type: Spontaneous
  Country: US (occurrence: US)
  Receive Date: 20190314
  Receipt Date: 20191121
  Transmission Date: 20200122
  Serious: Yes (Hospitalization)
  Sender: FDA-Public Use
  Company Number: US-PFIZER INC-2019105308

PATIENT
  Age: 64 Year
  Sex: Female
  Weight: 91 kg

DRUGS (5)
  1. PERCOGESIC [PARACETAMOL;PHENYLTOLOXAMINE CITRATE] [Concomitant]
     Active Substance: ACETAMINOPHEN\PHENYLTOLOXAMINE CITRATE
     Indication: HEADACHE
     Dosage: UNK
  2. LYRICA [Suspect]
     Active Substance: PREGABALIN
     Indication: PAIN
  3. LYRICA [Suspect]
     Active Substance: PREGABALIN
     Indication: ARTHRITIS
     Dosage: 225 MG, 3X/DAY, (1 CAPSULE BY MOUTH THREE TIMES DAILY)
     Route: 048
  4. BABY ASPIRIN [Concomitant]
     Active Substance: ASPIRIN
     Dosage: UNK
  5. ALLERGY RELIEF [CETIRIZINE HYDROCHLORIDE] [Concomitant]
     Dosage: UNK

REACTIONS (6)
  - Walking aid user [Unknown]
  - Prescribed overdose [Unknown]
  - Decreased appetite [Recovered/Resolved]
  - Malaise [Unknown]
  - Weight decreased [Unknown]
  - Fall [Recovered/Resolved]
